FAERS Safety Report 24606969 (Version 1)
Quarter: 2024Q4

REPORT INFORMATION
  Report Type: Report from Study
  Country: ZA (occurrence: ZA)
  Receive Date: 20241112
  Receipt Date: 20241112
  Transmission Date: 20250115
  Serious: Yes (Other)
  Sender: ALEXION PHARMACEUTICALS
  Company Number: ZA-AstraZeneca-CH-00736494A

PATIENT
  Age: 69 Year

DRUGS (9)
  1. DAPAGLIFLOZIN [Suspect]
     Active Substance: DAPAGLIFLOZIN
  2. TEGADERM DRESSING 100X120MM 1626W [Concomitant]
  3. GAUZE BLUE NON STERILE 100X100 DT018700 [Concomitant]
  4. SODIUM CHLORIDE [Concomitant]
     Active Substance: SODIUM CHLORIDE
  5. PEGFILGRASTIM MYLAN 6 MG [Concomitant]
  6. PACLITAXEL 300 EUROLAB 300 MG [Concomitant]
  7. CARBOSIN 550 MG [Concomitant]
  8. ALLERGEX 4 MG [Concomitant]
  9. CIMETIDINE 200 MG [Concomitant]

REACTIONS (1)
  - Ovarian cancer [Unknown]
